FAERS Safety Report 19533298 (Version 1)
Quarter: 2021Q3

REPORT INFORMATION
  Report Type: Spontaneous
  Country: US (occurrence: US)
  Receive Date: 20210714
  Receipt Date: 20210714
  Transmission Date: 20211014
  Serious: Yes (Other)
  Sender: FDA-Public Use
  Company Number: US-STRIDES ARCOLAB LIMITED-2021SP017932

PATIENT
  Age: 65 Year
  Sex: Female

DRUGS (1)
  1. RANITIDINE. [Suspect]
     Active Substance: RANITIDINE
     Indication: PROPHYLAXIS
     Dosage: UNK
     Route: 048
     Dates: start: 199501, end: 201801

REACTIONS (2)
  - Lung neoplasm malignant [Unknown]
  - Breast cancer [Unknown]

NARRATIVE: CASE EVENT DATE: 20180101
